FAERS Safety Report 5877768-0 (Version None)
Quarter: 2008Q3

REPORT INFORMATION
  Report Type: 
  Country: None (occurrence: None)
  Receive Date: 20080911
  Receipt Date: 20080829
  Transmission Date: 20090109
  Serious: Yes (Hospitalization)
  Sender: FDA-Public Use
  Company Number: IT-ELI_LILLY_AND_COMPANY-IT200809000793

PATIENT
  Age: 66 Year
  Sex: Female

DRUGS (10)
  1. CYMBALTA [Suspect]
     Indication: DEPRESSION
     Dosage: 60 MG, DAILY (1/D)
     Route: 065
  2. CYMBALTA [Suspect]
     Dosage: 540 MG (NINE TABLETS, UNKNOWN
  3. TRAZODONE HCL [Concomitant]
     Dosage: 75 MG, DAILY (1/D)
     Route: 065
  4. TRAZODONE HCL [Concomitant]
     Dosage: 675 MG(NINE TABLETS), UNKNOWN
     Route: 065
  5. CLONAZEPAM [Concomitant]
     Dosage: UNK, AS NEEDED
     Route: 065
  6. CLONAZEPAM [Concomitant]
     Dosage: 0.125 MG, UNKNOWN
     Route: 065
  7. VENLAFAXINE HCL [Concomitant]
     Indication: DEPRESSION
     Dosage: 75 MG, UNKNOWN
     Route: 065
  8. VENLAFAXINE HCL [Concomitant]
     Dosage: UNK(OVERDOSE), UNKNOWN
     Route: 065
  9. SERTRALINE [Concomitant]
     Indication: DEPRESSION
     Dosage: 50 MG, UNKNOWN
     Route: 065
  10. SERTRALINE [Concomitant]
     Dosage: UNK(OVERDOSE), UNKNOWN
     Route: 065

REACTIONS (5)
  - CARDIOVASCULAR DISORDER [None]
  - ELECTROLYTE IMBALANCE [None]
  - INTENTIONAL OVERDOSE [None]
  - MENTAL DISORDER [None]
  - SUICIDE ATTEMPT [None]
